FAERS Safety Report 5474770-8 (Version None)
Quarter: 2007Q4

REPORT INFORMATION
  Report Type: 
  Country: None (occurrence: None)
  Receive Date: 20071002
  Receipt Date: 20070928
  Transmission Date: 20080405
  Serious: Yes (Death)
  Sender: FDA-Public Use
  Company Number: A0685392A

PATIENT
  Age: 62 Year
  Sex: Female

DRUGS (3)
  1. SERETIDE [Suspect]
     Indication: ASTHMA
     Dates: start: 20050101, end: 20070622
  2. AMINOPHYLLINE [Concomitant]
  3. DEFLAZACORT [Concomitant]

REACTIONS (2)
  - DIABETES MELLITUS [None]
  - RESPIRATORY FAILURE [None]
